FAERS Safety Report 22252462 (Version 1)
Quarter: 2023Q2

REPORT INFORMATION
  Report Type: Spontaneous
  Country: ES (occurrence: ES)
  Receive Date: 20230426
  Receipt Date: 20230426
  Transmission Date: 20230722
  Serious: Yes (Other)
  Sender: FDA-Public Use
  Company Number: ES-VALIDUS PHARMACEUTICALS LLC-ES-VDP-2023-016047

PATIENT

DRUGS (4)
  1. CEFOTAXIME SODIUM [Suspect]
     Active Substance: CEFOTAXIME SODIUM
     Indication: Cellulitis
     Dosage: 2 GRAM. 6ID
     Route: 042
     Dates: start: 20230208, end: 20230210
  2. CLOXACILLIN [Suspect]
     Active Substance: CLOXACILLIN
     Indication: Cellulitis
     Dosage: 2 GRAM, 6ID
     Route: 042
     Dates: start: 20230208, end: 20230211
  3. DEXKETOPROFEN [Concomitant]
     Active Substance: DEXKETOPROFEN
     Indication: Antiinflammatory therapy
     Dosage: UNK
     Route: 065
     Dates: start: 20230208
  4. AMOXICILLIN\CLAVULANIC ACID [Concomitant]
     Active Substance: AMOXICILLIN\CLAVULANIC ACID
     Indication: Localised infection
     Dosage: UNK
     Route: 065
     Dates: start: 20230202

REACTIONS (2)
  - Erythema [Recovered/Resolved]
  - Pruritus [Recovered/Resolved]
